FAERS Safety Report 14172382 (Version 1)
Quarter: 2017Q4

REPORT INFORMATION
  Report Type: Spontaneous
  Country: US (occurrence: US)
  Receive Date: 20171109
  Receipt Date: 20171109
  Transmission Date: 20180321
  Serious: Yes (Other)
  Sender: FDA-Public Use
  Company Number: US-DENTSPLY PHARMACEUTICAL-2016SCDP000262

PATIENT
  Age: 47 Year
  Sex: Female

DRUGS (1)
  1. CITANEST FORTE [Suspect]
     Active Substance: EPINEPHRINE BITARTRATE\PRILOCAINE HYDROCHLORIDE
     Indication: LOCAL ANAESTHESIA
     Dosage: UNK
     Route: 004
     Dates: start: 20161006, end: 20161006

REACTIONS (1)
  - Seizure [Unknown]

NARRATIVE: CASE EVENT DATE: 20161006
